FAERS Safety Report 19219222 (Version 1)
Quarter: 2021Q2

REPORT INFORMATION
  Report Type: Spontaneous
  Country: US (occurrence: US)
  Receive Date: 20210506
  Receipt Date: 20210506
  Transmission Date: 20210717
  Serious: No
  Sender: FDA-Public Use
  Company Number: US-ROCHE-2621126

PATIENT
  Sex: Female

DRUGS (1)
  1. ESBRIET [Suspect]
     Active Substance: PIRFENIDONE
     Indication: IDIOPATHIC PULMONARY FIBROSIS
     Dosage: ONGOING: YES, TAKE 2 CAPSULE (534 MG) BY MOUTH THREE TIMES DAY
     Route: 048
     Dates: start: 20190601

REACTIONS (2)
  - Weight decreased [Unknown]
  - Decreased appetite [Unknown]
